FAERS Safety Report 21018829 (Version 2)
Quarter: 2022Q3

REPORT INFORMATION
  Report Type: Spontaneous
  Country: US (occurrence: US)
  Receive Date: 20220628
  Receipt Date: 20220715
  Transmission Date: 20221027
  Serious: No
  Sender: FDA-Public Use
  Company Number: US-INCYTE CORPORATION-2022IN006138

PATIENT

DRUGS (1)
  1. JAKAFI [Suspect]
     Active Substance: RUXOLITINIB
     Indication: Myelofibrosis
     Dosage: 20 MILLIGRAM, BID
     Route: 048
     Dates: start: 20220308

REACTIONS (12)
  - Muscle strain [Unknown]
  - Discomfort [Unknown]
  - Dyschezia [Unknown]
  - Pain [Unknown]
  - Decreased activity [Unknown]
  - Fatigue [Unknown]
  - Faeces discoloured [Unknown]
  - Poor quality sleep [Unknown]
  - Back pain [Unknown]
  - Arthralgia [Unknown]
  - Somnolence [Unknown]
  - Constipation [Unknown]
